FAERS Safety Report 18456236 (Version 2)
Quarter: 2021Q1

REPORT INFORMATION
  Report Type: Spontaneous
  Country: TW (occurrence: TW)
  Receive Date: 20201103
  Receipt Date: 20210315
  Transmission Date: 20210419
  Serious: Yes (Life-Threatening, Hospitalization, Other)
  Sender: FDA-Public Use
  Company Number: TW-SA-2020SA308422

PATIENT
  Age: 14 Year
  Sex: Female

DRUGS (2)
  1. MYOZYME [Suspect]
     Active Substance: ALGLUCOSIDASE ALFA
     Dosage: 50 MG
     Route: 041
     Dates: start: 20210308, end: 20210308
  2. MYOZYME [Suspect]
     Active Substance: ALGLUCOSIDASE ALFA
     Dosage: 21.67 MG/KG, QW
     Route: 042

REACTIONS (5)
  - Choking [Unknown]
  - Pneumothorax [Recovered/Resolved]
  - Productive cough [Unknown]
  - Off label use [Unknown]
  - Seizure [Unknown]

NARRATIVE: CASE EVENT DATE: 20201031
